FAERS Safety Report 17951794 (Version 1)
Quarter: 2020Q2

REPORT INFORMATION
  Report Type: Spontaneous
  Country: DE (occurrence: DE)
  Receive Date: 20200626
  Receipt Date: 20200626
  Transmission Date: 20200714
  Serious: Yes (Hospitalization)
  Sender: FDA-Public Use
  Company Number: DE-AMGEN-DEUSP2020100895

PATIENT
  Age: 40 Year
  Sex: Female

DRUGS (3)
  1. CYCLOPHOSPHAMIDE. [Concomitant]
     Active Substance: CYCLOPHOSPHAMIDE
     Indication: BREAST CANCER
     Dosage: UNK (CYCLE 1 AND CYCLE 2 15 DAYS AFTER 1ST APPLICATION)
  2. EPIRUBICIN [Concomitant]
     Active Substance: EPIRUBICIN
     Indication: BREAST CANCER
     Dosage: UNK (CYCLE 1 AND CYCLE 2 15 DAYS AFTER 1ST APPLICATION)
  3. PEGFILGRASTIM [Suspect]
     Active Substance: PEGFILGRASTIM
     Indication: PRODUCT USED FOR UNKNOWN INDICATION
     Dosage: UNK (CYCLE 1 AND CYCLE 2 15 DAYS AFTER 1ST APPLICATION)
     Route: 065

REACTIONS (3)
  - Myalgia [Recovered/Resolved]
  - Pyrexia [Unknown]
  - Bone pain [Recovered/Resolved]
